FAERS Safety Report 5484799-1 (Version None)
Quarter: 2007Q4

REPORT INFORMATION
  Report Type: 
  Country: None (occurrence: None)
  Receive Date: 20071012
  Receipt Date: 20071001
  Transmission Date: 20080405
  Serious: Yes (Other)
  Sender: FDA-Public Use
  Company Number: US-PFIZER INC-2007082599

PATIENT
  Sex: Female
  Weight: 56.818 kg

DRUGS (11)
  1. LYRICA [Suspect]
     Indication: CONVULSION
  2. LYRICA [Suspect]
     Indication: TRANSIENT ISCHAEMIC ATTACK
  3. NEURONTIN [Suspect]
     Indication: MIGRAINE
     Dosage: DAILY DOSE:1200MG
  4. NEURONTIN [Suspect]
     Indication: CONVULSION
  5. TOPROL-XL [Concomitant]
  6. ACETYLSALICYLIC ACID [Concomitant]
  7. VESICARE [Concomitant]
  8. SYNTHROID [Concomitant]
  9. CRESTOR [Concomitant]
  10. VICODIN [Concomitant]
  11. VALIUM [Concomitant]

REACTIONS (12)
  - ACTIVITIES OF DAILY LIVING IMPAIRED [None]
  - DEPRESSION [None]
  - DIABETES MELLITUS [None]
  - DRY MOUTH [None]
  - EYE PAIN [None]
  - HEADACHE [None]
  - LACRIMATION INCREASED [None]
  - OEDEMA PERIPHERAL [None]
  - VERTIGO [None]
  - VISION BLURRED [None]
  - WEIGHT DECREASED [None]
  - WEIGHT INCREASED [None]
